FAERS Safety Report 21133633 (Version 3)
Quarter: 2022Q4

REPORT INFORMATION
  Report Type: Report from Study
  Country: CA (occurrence: CA)
  Receive Date: 20220726
  Receipt Date: 20221014
  Transmission Date: 20230113
  Serious: Yes (Other)
  Sender: FDA-Public Use
  Company Number: CA-BRISTOL-MYERS SQUIBB COMPANY-2022-048555

PATIENT
  Age: 74 Year
  Sex: Female
  Weight: 83 kg

DRUGS (9)
  1. OPDIVO [Suspect]
     Active Substance: NIVOLUMAB
     Indication: Transitional cell carcinoma
     Dosage: 4 WEEKS
     Route: 042
  2. OPDIVO [Suspect]
     Active Substance: NIVOLUMAB
     Route: 042
     Dates: start: 20220427
  3. OPDIVO [Suspect]
     Active Substance: NIVOLUMAB
     Route: 042
  4. OPDIVO [Suspect]
     Active Substance: NIVOLUMAB
     Route: 042
  5. OPDIVO [Suspect]
     Active Substance: NIVOLUMAB
     Route: 042
  6. OPDIVO [Suspect]
     Active Substance: NIVOLUMAB
     Route: 042
     Dates: start: 20220817
  7. OPDIVO [Suspect]
     Active Substance: NIVOLUMAB
     Route: 042
  8. OMEPRAZOLE [Interacting]
     Active Substance: OMEPRAZOLE
     Indication: Product used for unknown indication
     Route: 065
  9. FAMOTIDINE [Concomitant]
     Active Substance: FAMOTIDINE
     Indication: Product used for unknown indication
     Route: 048
     Dates: start: 20220522

REACTIONS (8)
  - Renal disorder [Unknown]
  - Dermal cyst [Unknown]
  - Weight decreased [Unknown]
  - Headache [Not Recovered/Not Resolved]
  - Weight increased [Unknown]
  - Back pain [Recovered/Resolved]
  - Drug interaction [Unknown]
  - Urinary tract infection [Unknown]

NARRATIVE: CASE EVENT DATE: 20220101
